FAERS Safety Report 20322484 (Version 1)
Quarter: 2022Q1

REPORT INFORMATION
  Report Type: Spontaneous
  Country: US (occurrence: None)
  Receive Date: 20220110
  Receipt Date: 20220110
  Transmission Date: 20220423
  Serious: No
  Sender: FDA-Public Use
  Company Number: None

PATIENT
  Age: 49 Year
  Sex: Male
  Weight: 89 kg

DRUGS (1)
  1. BARICITINIB [Suspect]
     Active Substance: BARICITINIB
     Indication: SARS-CoV-2 test positive
     Dates: start: 20211211, end: 20211224

REACTIONS (3)
  - Pneumonia [None]
  - Pleural effusion [None]
  - Thrombosis [None]

NARRATIVE: CASE EVENT DATE: 20211228
